FAERS Safety Report 8885050 (Version 2)
Quarter: 2013Q3

REPORT INFORMATION
  Report Type: Spontaneous
  Country: US (occurrence: US)
  Receive Date: 20121102
  Receipt Date: 20130802
  Transmission Date: 20140515
  Serious: Yes (Other)
  Sender: FDA-Public Use
  Company Number: US-PFIZER INC-2012271961

PATIENT
  Age: 75 Year
  Sex: Female
  Weight: 86.17 kg

DRUGS (1)
  1. BEXTRA [Suspect]
     Dosage: UNK

REACTIONS (8)
  - Arthropathy [Unknown]
  - Gait disturbance [Unknown]
  - Impaired driving ability [Unknown]
  - Skin discolouration [Unknown]
  - Pruritus [Unknown]
  - Rash generalised [Unknown]
  - Genital rash [Unknown]
  - Purpura [Unknown]
